FAERS Safety Report 13758467 (Version 7)
Quarter: 2024Q1

REPORT INFORMATION
  Report Type: Spontaneous
  Country: US (occurrence: US)
  Receive Date: 20170717
  Receipt Date: 20240222
  Transmission Date: 20240410
  Serious: No
  Sender: FDA-Public Use
  Company Number: US-PFIZER INC-2017305713

PATIENT
  Age: 70 Year
  Sex: Female

DRUGS (4)
  1. IBRANCE [Suspect]
     Active Substance: PALBOCICLIB
     Indication: Breast cancer
     Dosage: 125 MG, CYCLIC, FOR 21 DAYS FOLLOWED BY 7 DAYS OFF, THEN REPEAT CYCLE
     Route: 048
  2. LETROZOLE [Concomitant]
     Active Substance: LETROZOLE
     Dosage: UNK
  3. OMEPRAZOLE [Concomitant]
     Active Substance: OMEPRAZOLE
     Dosage: UNK
  4. ENALAPRIL [Concomitant]
     Active Substance: ENALAPRIL
     Dosage: UNK

REACTIONS (3)
  - Dyspnoea [Unknown]
  - Weight increased [Unknown]
  - Fatigue [Unknown]

NARRATIVE: CASE EVENT DATE: 20180212
